FAERS Safety Report 18520414 (Version 1)
Quarter: 2020Q4

REPORT INFORMATION
  Report Type: Spontaneous
  Country: GB (occurrence: GB)
  Receive Date: 20201119
  Receipt Date: 20201119
  Transmission Date: 20210114
  Serious: Yes (Hospitalization)
  Sender: FDA-Public Use
  Company Number: GB-JNJFOC-20201114465

PATIENT
  Age: 37 Year
  Sex: Male

DRUGS (10)
  1. COAL TAR. [Concomitant]
     Active Substance: COAL TAR
  2. MOMETASONE [Concomitant]
     Active Substance: MOMETASONE
  3. CLOBETASOL [Concomitant]
     Active Substance: CLOBETASOL
  4. CLARITHROMYCIN. [Suspect]
     Active Substance: CLARITHROMYCIN
     Indication: SKIN INFECTION
     Route: 048
     Dates: start: 20200902, end: 20200905
  5. LOTRIDERM [Concomitant]
     Active Substance: BETAMETHASONE DIPROPIONATE\CLOTRIMAZOLE
  6. STELARA [Suspect]
     Active Substance: USTEKINUMAB
     Indication: PSORIASIS
     Route: 058
     Dates: start: 20140407
  7. OMEPRAZOLE. [Concomitant]
     Active Substance: OMEPRAZOLE
  8. CETIRIZINE [Concomitant]
     Active Substance: CETIRIZINE HYDROCHLORIDE
  9. CALCIPOTRIOL [Concomitant]
     Active Substance: CALCIPOTRIENE
  10. TRIMOVATE                          /00456501/ [Concomitant]

REACTIONS (2)
  - Skin infection [Unknown]
  - Neutropenia [Recovered/Resolved]

NARRATIVE: CASE EVENT DATE: 20200907
